FAERS Safety Report 5408703-7 (Version None)
Quarter: 2007Q3

REPORT INFORMATION
  Report Type: 
  Country: None (occurrence: None)
  Receive Date: 20070808
  Receipt Date: 20070803
  Transmission Date: 20080115
  Serious: Yes (Other)
  Sender: FDA-Public Use
  Company Number: A0668129A

PATIENT
  Sex: Female

DRUGS (7)
  1. LAMICTAL [Suspect]
     Indication: BIPOLAR DISORDER
     Dosage: 100MG PER DAY
     Route: 048
     Dates: start: 20070617, end: 20070730
  2. BUPROPION HYDROCHLORIDE [Suspect]
     Indication: DEPRESSION
     Dosage: 150MG PER DAY
     Route: 048
     Dates: start: 20030101, end: 20030101
  3. RITALIN [Concomitant]
  4. ZESTRIL [Concomitant]
  5. DOXYCYCLINE [Concomitant]
  6. HYDROCHLOROTHIAZIDE [Concomitant]
  7. METFORMIN HCL [Concomitant]

REACTIONS (7)
  - AGITATION [None]
  - EYE MOVEMENT DISORDER [None]
  - FEELING JITTERY [None]
  - HEADACHE [None]
  - HOMICIDAL IDEATION [None]
  - INSOMNIA [None]
  - SUICIDAL IDEATION [None]
